FAERS Safety Report 12374856 (Version 1)
Quarter: 2016Q2

REPORT INFORMATION
  Report Type: Spontaneous
  Country: US (occurrence: None)
  Receive Date: 20160516
  Receipt Date: 20160516
  Transmission Date: 20160815
  Serious: Yes (Hospitalization)
  Sender: FDA-Public Use
  Company Number: None

PATIENT
  Age: 41 Year
  Sex: Female

DRUGS (2)
  1. PULMOZYME [Suspect]
     Active Substance: DORNASE ALFA
     Indication: CYSTIC FIBROSIS
     Dosage: 2.5MG/2.5ML QD INHALATION
     Route: 055
  2. LEVALBUTEROL. [Concomitant]
     Active Substance: LEVALBUTEROL

REACTIONS (2)
  - Cystic fibrosis [None]
  - Disease complication [None]

NARRATIVE: CASE EVENT DATE: 20160426
